FAERS Safety Report 4477134-9 (Version None)
Quarter: 2004Q4

REPORT INFORMATION
  Report Type: 
  Country: None (occurrence: None)
  Receive Date: 20041013
  Receipt Date: 20041006
  Transmission Date: 20050328
  Serious: No
  Sender: FDA-Public Use
  Company Number: A044-002-005230

PATIENT
  Age: 78 Year
  Sex: Female

DRUGS (1)
  1. ARICEPT [Suspect]
     Dosage: 10 MG, 1 IN 1 D, ORAL
     Route: 048
     Dates: start: 20011020, end: 20020121

REACTIONS (4)
  - BRADYCARDIA [None]
  - COMA [None]
  - HYPOTHERMIA [None]
  - VOMITING [None]
